FAERS Safety Report 9304790 (Version 2)
Quarter: 2013Q4

REPORT INFORMATION
  Report Type: Spontaneous
  Country: IT (occurrence: IT)
  Receive Date: 20130523
  Receipt Date: 20131206
  Transmission Date: 20140711
  Serious: Yes (Other)
  Sender: FDA-Public Use
  Company Number: IT-ACCORD-017708

PATIENT
  Age: 65 Year
  Sex: Male
  Weight: 62 kg

DRUGS (6)
  1. GEMCITABINE [Suspect]
     Indication: LUNG NEOPLASM MALIGNANT
     Route: 042
     Dates: start: 20130213, end: 20130307
  2. CISPLATIN [Suspect]
     Indication: LUNG NEOPLASM MALIGNANT
     Route: 042
     Dates: start: 20130213, end: 20130307
  3. ONDANSETRON [Concomitant]
     Dosage: 8 MG/4 ML, ONDANSETRONE HIKMA - 5 GLASS?VIALS (HIKMA FARMACEUTICA (PORTUGAL) S.A.) (A04AA01)
     Route: 042
     Dates: start: 20130213, end: 20130307
  4. RANIDIL [Concomitant]
     Dosage: 50 MG/5 ML,10 VIALS (A. MENARINI INDUSTRIE FARMACEUTICHE RIUNITE S.R.L.) (A02BA02)
     Route: 042
     Dates: start: 20130213, end: 20130307
  5. LUMINALE [Concomitant]
     Route: 048
  6. SOLDESAM [Concomitant]
     Indication: LUNG NEOPLASM MALIGNANT
     Dosage: 8 MG/2 ML, 3 VIALS 2 ML?(LABORATORIO FARMACOLOGICO MILANESE S.R.L.) (H02AB02)
     Route: 042
     Dates: start: 20130213, end: 20130307

REACTIONS (5)
  - Chest pain [Recovering/Resolving]
  - Abdominal pain [Recovering/Resolving]
  - Asthenia [Recovering/Resolving]
  - Dyspnoea [Recovering/Resolving]
  - Dermatitis acneiform [Recovering/Resolving]
